FAERS Safety Report 21614241 (Version 1)
Quarter: 2022Q4

REPORT INFORMATION
  Report Type: Spontaneous
  Country: JP (occurrence: JP)
  Receive Date: 20221118
  Receipt Date: 20221118
  Transmission Date: 20230113
  Serious: Yes (Death)
  Sender: FDA-Public Use
  Company Number: JP-002147023-NVSC2022JP259551

PATIENT
  Age: 85 Year
  Sex: Female

DRUGS (1)
  1. RECLAST [Suspect]
     Active Substance: ZOLEDRONIC ACID
     Indication: Product used for unknown indication
     Dosage: 5 MG, ONCE A YEAR
     Route: 041
     Dates: start: 20181128

REACTIONS (1)
  - Death [Fatal]

NARRATIVE: CASE EVENT DATE: 20220502
